FAERS Safety Report 6611549-5 (Version None)
Quarter: 2010Q1

REPORT INFORMATION
  Report Type: 
  Country: None (occurrence: None)
  Receive Date: 20100303
  Receipt Date: 20100226
  Transmission Date: 20100710
  Serious: Yes (Death)
  Sender: FDA-Public Use
  Company Number: PHHY2010NO11875

PATIENT

DRUGS (1)
  1. VOLTAREN [Suspect]

REACTIONS (2)
  - ACUTE PSYCHOSIS [None]
  - COMPLETED SUICIDE [None]
